FAERS Safety Report 23444574 (Version 1)
Quarter: 2024Q1

REPORT INFORMATION
  Report Type: Spontaneous
  Country: CA (occurrence: CA)
  Receive Date: 20240125
  Receipt Date: 20240125
  Transmission Date: 20240410
  Serious: Yes (Congenital Anomaly, Other)
  Sender: FDA-Public Use
  Company Number: CA-FreseniusKabi-FK202401345

PATIENT
  Age: 6 Month
  Sex: Female

DRUGS (10)
  1. LEVOTHYROXINE SODIUM [Suspect]
     Active Substance: LEVOTHYROXINE SODIUM
     Indication: Product used for unknown indication
     Dosage: DOSAGE FORM- NOT SPECIFIED?ROA- TRANSPLACENTAL
  2. CYCLOBENZAPRINE [Suspect]
     Active Substance: CYCLOBENZAPRINE
     Indication: Product used for unknown indication
     Dosage: DOSAGE FORM- TABLETS?ROA- TRANSPLACENTAL
  3. DOCUSATE SODIUM [Suspect]
     Active Substance: DOCUSATE SODIUM
     Indication: Product used for unknown indication
     Dosage: DOSAGE FORM- NOT SPECIFIED?ROA- TRANSPLACENTAL
  4. DOMPERIDONE [Suspect]
     Active Substance: DOMPERIDONE
     Indication: Product used for unknown indication
     Dosage: DOSAGE FORM- TABLETS?ROA- TRANSPLACENTAL
  5. DULOXETINE [Suspect]
     Active Substance: DULOXETINE
     Indication: Product used for unknown indication
     Dosage: DOSAGE FORM- NOT SPECIFIED?ROA- UNKNOWN
  6. FERROUS SULFATE [Suspect]
     Active Substance: FERROUS SULFATE
     Indication: Product used for unknown indication
     Dosage: DOSAGE FORM- NOT SPECIFIED?ROA- TRANSPLACENTAL
  7. INSULIN NOS [Suspect]
     Active Substance: INSULIN NOS
     Indication: Product used for unknown indication
     Dosage: DOSAGE FORM- NOT SPECIFIED?ROA- TRANSPLACENTAL
  8. METHYLPHENIDATE [Suspect]
     Active Substance: METHYLPHENIDATE
     Indication: Product used for unknown indication
     Dosage: DOSAGE FORM- NOT SPECIFIED?ROA- TRANSPLACENTAL
  9. OMEPRAZOLE [Suspect]
     Active Substance: OMEPRAZOLE
     Indication: Product used for unknown indication
     Dosage: DOSAGE FORM- NOT SPECIFIED?ROA- TRANSPLACENTAL
  10. URSODIOL [Suspect]
     Active Substance: URSODIOL
     Indication: Product used for unknown indication
     Dosage: DOSAGE FORM- NOT SPECIFIED?ROA- TRANSPLACENTAL

REACTIONS (2)
  - Poor sucking reflex [Unknown]
  - Pulmonary malformation [Unknown]
